FAERS Safety Report 8476850 (Version 2)
Quarter: 2013Q1

REPORT INFORMATION
  Report Type: Report from Study
  Country: VE (occurrence: VE)
  Receive Date: 20120326
  Receipt Date: 20130121
  Transmission Date: 20140127
  Serious: Yes (Other)
  Sender: FDA-Public Use
  Company Number: VE-ABBOTT-12P-178-0917028-00

PATIENT
  Age: 61 None
  Sex: Female

DRUGS (3)
  1. HUMIRA 40 MG/ 0.8 ML PRE-FILLED SYRINGE [Suspect]
     Indication: RHEUMATOID ARTHRITIS
     Route: 058
     Dates: start: 20100301, end: 201111
  2. ACCUPRIL [Concomitant]
     Indication: HYPERTENSION
     Dosage: 10 MG DAILY
     Route: 048
  3. RIVOTRIL [Concomitant]
     Indication: HYPERTENSION
     Dosage: 0.5 MG DAILY
     Route: 048

REACTIONS (2)
  - Tuberculin test positive [Recovering/Resolving]
  - Drug-induced liver injury [Recovered/Resolved]
